FAERS Safety Report 19944973 (Version 1)
Quarter: 2021Q4

REPORT INFORMATION
  Report Type: Spontaneous
  Country: RO (occurrence: RO)
  Receive Date: 20211012
  Receipt Date: 20211012
  Transmission Date: 20220304
  Serious: Yes (Other)
  Sender: FDA-Public Use
  Company Number: RO-009507513-2106ROM003768

PATIENT
  Age: 65 Year

DRUGS (3)
  1. CARBOPLATIN [Suspect]
     Active Substance: CARBOPLATIN
     Indication: Lung squamous cell carcinoma metastatic
     Dosage: AUC 6
  2. PACLITAXEL [Suspect]
     Active Substance: PACLITAXEL
     Indication: Lung squamous cell carcinoma metastatic
     Dosage: 200 MILLIGRAM/SQ. METER
  3. PEMBROLIZUMAB [Suspect]
     Active Substance: PEMBROLIZUMAB
     Indication: Lung squamous cell carcinoma metastatic
     Dosage: 200 MG, EVERY 3 WEEKS

REACTIONS (7)
  - Blood glucose fluctuation [Recovered/Resolved]
  - Asthenia [Unknown]
  - Chest pain [Unknown]
  - Platelet count abnormal [Recovered/Resolved]
  - Dyspnoea [Unknown]
  - Type 1 diabetes mellitus [Unknown]
  - Cough [Unknown]
